FAERS Safety Report 5762672-9 (Version None)
Quarter: 2008Q2

REPORT INFORMATION
  Report Type: 
  Country: None (occurrence: None)
  Receive Date: 20080609
  Receipt Date: 20080529
  Transmission Date: 20081010
  Serious: Yes (Hospitalization, Other)
  Sender: FDA-Public Use
  Company Number: CA-JNJFOC-20080204035

PATIENT
  Sex: Male
  Weight: 99.79 kg

DRUGS (5)
  1. REMICADE [Suspect]
     Indication: CROHN'S DISEASE
     Dosage: FOR AT LEAST 2 YEARS
     Route: 042
  2. HUMIRA [Concomitant]
  3. CYCLOSPORINE [Concomitant]
     Indication: LIVER TRANSPLANT
  4. IMURAN [Concomitant]
     Indication: LIVER TRANSPLANT
  5. ANTIHYPERTENSIVE [Concomitant]

REACTIONS (2)
  - LUPUS VASCULITIS [None]
  - PNEUMONITIS [None]
